FAERS Safety Report 12268919 (Version 3)
Quarter: 2016Q2

REPORT INFORMATION
  Report Type: Spontaneous
  Country: JP (occurrence: JP)
  Receive Date: 20160414
  Receipt Date: 20160512
  Transmission Date: 20160815
  Serious: Yes (Other)
  Sender: FDA-Public Use
  Company Number: JP-PFIZER INC-2016203748

PATIENT
  Age: 77 Year
  Sex: Male

DRUGS (2)
  1. LOXOPROFEN SODIUM [Suspect]
     Active Substance: LOXOPROFEN SODIUM
     Dosage: UNK
     Route: 065
     Dates: start: 20160301
  2. LYRICA [Suspect]
     Active Substance: PREGABALIN
     Indication: NEURALGIA
     Dosage: 75 MG, 1X/DAY
     Route: 048
     Dates: start: 20160324, end: 20160404

REACTIONS (3)
  - Myocardial ischaemia [Unknown]
  - Cardiac failure [Recovered/Resolved]
  - Pulmonary congestion [Unknown]

NARRATIVE: CASE EVENT DATE: 20160404
